FAERS Safety Report 17398486 (Version 2)
Quarter: 2020Q1

REPORT INFORMATION
  Report Type: Report from Study
  Country: EG (occurrence: EG)
  Receive Date: 20200210
  Receipt Date: 20200219
  Transmission Date: 20200409
  Serious: Yes (Other)
  Sender: FDA-Public Use
  Company Number: NVSC2020EG029504

PATIENT
  Age: 19 Year
  Sex: Female

DRUGS (12)
  1. SPRYCEL [Suspect]
     Active Substance: DASATINIB
     Indication: CHRONIC MYELOID LEUKAEMIA
     Dosage: UNK
     Route: 065
     Dates: start: 201701, end: 201706
  2. INTERFERON [Suspect]
     Active Substance: INTERFERON
     Indication: CHRONIC MYELOID LEUKAEMIA
     Dosage: UNK
     Route: 065
  3. GLIVEC [Suspect]
     Active Substance: IMATINIB MESYLATE
     Dosage: 400 MG, QD
     Route: 048
  4. SPRYCEL [Suspect]
     Active Substance: DASATINIB
     Dosage: 50 MG, UNKNOWN FREQUENCY
     Route: 065
     Dates: start: 2019
  5. GLIVEC [Suspect]
     Active Substance: IMATINIB MESYLATE
     Indication: CHRONIC MYELOID LEUKAEMIA
     Dosage: 400 MG, QD
     Route: 048
     Dates: start: 2014, end: 201606
  6. SPRYCEL [Suspect]
     Active Substance: DASATINIB
     Dosage: 50 MG, UNKNOWN FREQUENCY
     Route: 065
     Dates: end: 20200105
  7. SPRYCEL [Suspect]
     Active Substance: DASATINIB
     Dosage: 10 MG IN FIRST 3 MONTHS ALTERNATING WITH 50 MG IN LAST MONTHS
     Route: 065
  8. TASIGNA [Suspect]
     Active Substance: NILOTINIB
     Dosage: 800 MG, QD
     Route: 048
     Dates: start: 20180605, end: 201906
  9. GLIVEC [Suspect]
     Active Substance: IMATINIB MESYLATE
     Dosage: UNK
     Route: 048
     Dates: start: 201606, end: 201706
  10. TASIGNA [Suspect]
     Active Substance: NILOTINIB
     Indication: CHRONIC MYELOID LEUKAEMIA
     Dosage: 200 MG, UNKNOWN FREQUENCY
     Route: 048
     Dates: start: 201606, end: 2016
  11. GLIVEC [Suspect]
     Active Substance: IMATINIB MESYLATE
     Dosage: 400 MG, QD
     Route: 048
     Dates: start: 201706, end: 201806
  12. TASIGNA [Suspect]
     Active Substance: NILOTINIB
     Dosage: UNK
     Route: 048
     Dates: start: 2019

REACTIONS (6)
  - Immunodeficiency [Recovered/Resolved]
  - Menorrhagia [Unknown]
  - Haemoglobin decreased [Recovering/Resolving]
  - Scar [Not Recovered/Not Resolved]
  - Polymerase chain reaction positive [Recovered/Resolved]
  - Rash macular [Not Recovered/Not Resolved]

NARRATIVE: CASE EVENT DATE: 201601
